FAERS Safety Report 9028877 (Version 1)
Quarter: 2013Q1

REPORT INFORMATION
  Report Type: Spontaneous
  Country: FR (occurrence: FR)
  Receive Date: 20130124
  Receipt Date: 20130124
  Transmission Date: 20140127
  Serious: Yes (Hospitalization)
  Sender: FDA-Public Use
  Company Number: FR-ELI_LILLY_AND_COMPANY-FR201301004662

PATIENT
  Age: 81 Year
  Sex: Female

DRUGS (2)
  1. CYMBALTA [Suspect]
     Indication: NEURALGIA
     Dosage: 30 MG, QD
     Dates: start: 201206
  2. CYMBALTA [Suspect]
     Dosage: 30 MG, BID
     Route: 048
     Dates: start: 201206, end: 201207

REACTIONS (2)
  - Colitis microscopic [Recovered/Resolved]
  - Off label use [Recovered/Resolved]
